FAERS Safety Report 8453474-3 (Version None)
Quarter: 2012Q2

REPORT INFORMATION
  Report Type: 
  Country: None (occurrence: None)
  Receive Date: 20120620
  Receipt Date: 20120519
  Transmission Date: 20120825
  Serious: No
  Sender: FDA-Public Use
  Company Number: US-VERTEX PHARMACEUTICALS INC.-AE-2012-007414

PATIENT
  Sex: Female
  Weight: 93.524 kg

DRUGS (7)
  1. INCIVEK [Suspect]
     Indication: HEPATITIS C
     Route: 048
     Dates: start: 20120505
  2. SYNTHROID [Concomitant]
  3. IMITREX [Concomitant]
     Indication: MIGRAINE
  4. IMITREX [Concomitant]
     Indication: HEADACHE
  5. PEGASYS [Concomitant]
     Indication: HEPATITIS C
     Route: 058
     Dates: start: 20120504
  6. TOPAMAX [Concomitant]
     Route: 048
  7. RIBAVIRIN [Concomitant]
     Indication: HEPATITIS C
     Route: 048
     Dates: start: 20120505

REACTIONS (1)
  - RASH [None]
